FAERS Safety Report 8174035-X (Version None)
Quarter: 2012Q1

REPORT INFORMATION
  Report Type: 
  Country: None (occurrence: None)
  Receive Date: 20120224
  Receipt Date: 20120215
  Transmission Date: 20120608
  Serious: Yes (Other)
  Sender: FDA-Public Use
  Company Number: DSA_55178_2012

PATIENT
  Sex: Female

DRUGS (1)
  1. DILTIAZEM [Suspect]
     Indication: PRODUCT USED FOR UNKNOWN INDICATION
     Dosage: (FREQUENCY UNSPECIFIED)

REACTIONS (1)
  - CONVULSION [None]
